FAERS Safety Report 7553845-3 (Version None)
Quarter: 2011Q2

REPORT INFORMATION
  Report Type: 
  Country: None (occurrence: None)
  Receive Date: 20110617
  Receipt Date: 20110609
  Transmission Date: 20111010
  Serious: Yes (Death, Hospitalization)
  Sender: FDA-Public Use
  Company Number: GB-BRISTOL-MYERS SQUIBB COMPANY-15818248

PATIENT
  Age: 72 Year
  Sex: Male

DRUGS (9)
  1. ACETAMINOPHEN AND CODEINE PHOSPHATE [Concomitant]
     Dosage: 1DF=2400/4GM
     Route: 048
     Dates: start: 20110201, end: 20110430
  2. PRAVASTATIN SODIUM [Concomitant]
     Route: 048
     Dates: start: 20110201, end: 20110430
  3. SPIRONOLACTONE [Concomitant]
     Route: 048
     Dates: start: 20110201, end: 20110429
  4. ETOPOSIDE [Suspect]
     Indication: CHEMOTHERAPY
  5. BISOPROLOL FUMARATE [Concomitant]
     Route: 048
     Dates: start: 20110201, end: 20110429
  6. DALTEPARIN SODIUM [Concomitant]
     Indication: LUNG NEOPLASM MALIGNANT
     Dosage: INTERRUPTED ON 27APR2011
     Dates: start: 20110211
  7. CARBOPLATIN [Suspect]
     Indication: CHEMOTHERAPY
  8. SYMBICORT [Concomitant]
     Route: 055
     Dates: start: 20110301, end: 20110430
  9. RAMIPRIL [Concomitant]
     Route: 048
     Dates: start: 20110201, end: 20110429

REACTIONS (5)
  - LEFT VENTRICULAR FAILURE [None]
  - THROMBOCYTOPENIA [None]
  - ATRIAL FIBRILLATION [None]
  - NEUTROPENIC SEPSIS [None]
  - ANAEMIA [None]
